FAERS Safety Report 7475483-3 (Version None)
Quarter: 2011Q2

REPORT INFORMATION
  Report Type: 
  Country: None (occurrence: None)
  Receive Date: 20110512
  Receipt Date: 20110429
  Transmission Date: 20111010
  Serious: Yes (Other)
  Sender: FDA-Public Use
  Company Number: PHHY2011CA36695

PATIENT
  Age: 72 Year
  Sex: Male

DRUGS (1)
  1. TEKTURNA HCT [Suspect]
     Indication: BLOOD PRESSURE
     Dosage: 150 MG, UNK

REACTIONS (6)
  - TONGUE HAEMORRHAGE [None]
  - RHINORRHOEA [None]
  - HYPOAESTHESIA ORAL [None]
  - PAIN [None]
  - COUGH [None]
  - TONGUE ABSCESS [None]
